FAERS Safety Report 16024070 (Version 1)
Quarter: 2019Q1

REPORT INFORMATION
  Report Type: Spontaneous
  Country: US (occurrence: US)
  Receive Date: 20190301
  Receipt Date: 20190301
  Transmission Date: 20190418
  Serious: Yes (Hospitalization)
  Sender: FDA-Public Use
  Company Number: US-PFIZER INC-2019080064

PATIENT
  Age: 52 Year
  Sex: Female

DRUGS (1)
  1. ALPRAZOLAM. [Suspect]
     Active Substance: ALPRAZOLAM
     Indication: AUTOIMMUNE THYROIDITIS
     Dosage: UNK, AS NEEDED (0.5MG-1/2 TABLET (0.25MG)
     Route: 048
     Dates: start: 201805

REACTIONS (6)
  - Urticaria [Recovered/Resolved]
  - Rash macular [Recovered/Resolved]
  - Heart rate increased [Unknown]
  - Hypertension [Unknown]
  - Burning sensation [Recovered/Resolved]
  - Product use in unapproved indication [Unknown]
